FAERS Safety Report 16832089 (Version 1)
Quarter: 2019Q3

REPORT INFORMATION
  Report Type: Spontaneous
  Country: PT (occurrence: PT)
  Receive Date: 20190920
  Receipt Date: 20190920
  Transmission Date: 20191005
  Serious: Yes (Disabling)
  Sender: FDA-Public Use
  Company Number: PT-AUROBINDO-AUR-APL-2019-059180

PATIENT
  Age: 37 Year
  Sex: Male
  Weight: 70 kg

DRUGS (1)
  1. LEVOFLOXACIN AUROVITAS FILMCOATED TABLET [Suspect]
     Active Substance: LEVOFLOXACIN
     Indication: PROSTATITIS
     Dosage: 500 MILLIGRAM, ONCE A DAY,1 AO DIA
     Route: 048
     Dates: start: 20180526

REACTIONS (4)
  - Muscular weakness [Not Recovered/Not Resolved]
  - Pain in extremity [Not Recovered/Not Resolved]
  - Musculoskeletal pain [Not Recovered/Not Resolved]
  - Joint noise [Not Recovered/Not Resolved]

NARRATIVE: CASE EVENT DATE: 20180526
